FAERS Safety Report 4420934-1 (Version None)
Quarter: 2004Q3

REPORT INFORMATION
  Report Type: 
  Country: None (occurrence: None)
  Receive Date: 20040809
  Receipt Date: 20040727
  Transmission Date: 20050211
  Serious: Yes (Other)
  Sender: FDA-Public Use
  Company Number: NL-JNJFOC-20040301233

PATIENT
  Sex: Male

DRUGS (6)
  1. REMICADE [Suspect]
     Route: 042
  2. REMICADE [Suspect]
     Route: 042
  3. REMICADE [Suspect]
     Route: 042
  4. PLACEBO [Suspect]
  5. PLACEBO [Suspect]
  6. PLACEBO [Suspect]

REACTIONS (2)
  - METASTASES TO LYMPH NODES [None]
  - OROPHARYNGEAL CANCER STAGE UNSPECIFIED [None]
